FAERS Safety Report 13997231 (Version 3)
Quarter: 2017Q4

REPORT INFORMATION
  Report Type: Report from Study
  Country: CO (occurrence: CO)
  Receive Date: 20170921
  Receipt Date: 20171214
  Transmission Date: 20180321
  Serious: Yes (Hospitalization)
  Sender: FDA-Public Use
  Company Number: PHHY2017CO137669

PATIENT
  Age: 41 Year
  Sex: Female
  Weight: 70 kg

DRUGS (1)
  1. TASIGNA [Suspect]
     Active Substance: NILOTINIB
     Indication: CHRONIC MYELOID LEUKAEMIA
     Dosage: 200 MG, Q12H
     Route: 048
     Dates: start: 20170120

REACTIONS (12)
  - General physical health deterioration [Unknown]
  - Malaise [Unknown]
  - Migraine [Unknown]
  - Headache [Unknown]
  - Chronic myeloid leukaemia recurrent [Unknown]
  - Asthenia [Unknown]
  - Muscle spasms [Unknown]
  - Hypoacusis [Unknown]
  - Tremor [Unknown]
  - Blindness [Unknown]
  - Gait inability [Unknown]
  - Hyperhidrosis [Unknown]

NARRATIVE: CASE EVENT DATE: 20170714
